FAERS Safety Report 16270136 (Version 2)
Quarter: 2019Q2

REPORT INFORMATION
  Report Type: Report from Study
  Country: CA (occurrence: CA)
  Receive Date: 20190503
  Receipt Date: 20190521
  Transmission Date: 20190711
  Serious: Yes (Other)
  Sender: FDA-Public Use
  Company Number: CA-JNJFOC-20190307844

PATIENT
  Age: 73 Year
  Sex: Male
  Weight: 74 kg

DRUGS (1)
  1. REMICADE [Suspect]
     Active Substance: INFLIXIMAB
     Indication: COLITIS ULCERATIVE
     Dosage: STRENGTH = 100 MG
     Route: 042
     Dates: start: 20190222, end: 20190425

REACTIONS (13)
  - Infusion related reaction [Unknown]
  - Headache [Recovered/Resolved]
  - Decreased appetite [Not Recovered/Not Resolved]
  - Colectomy [Unknown]
  - Presyncope [Unknown]
  - Fatigue [Unknown]
  - Feeling hot [Unknown]
  - Dizziness [Not Recovered/Not Resolved]
  - Loss of consciousness [Unknown]
  - Blood glucose decreased [Recovering/Resolving]
  - Pallor [Unknown]
  - Facial pain [Recovered/Resolved]
  - Asthenia [Not Recovered/Not Resolved]

NARRATIVE: CASE EVENT DATE: 201903
